FAERS Safety Report 25482264 (Version 1)
Quarter: 2025Q2

REPORT INFORMATION
  Report Type: Spontaneous
  Country: TH (occurrence: TH)
  Receive Date: 20250626
  Receipt Date: 20250626
  Transmission Date: 20250716
  Serious: Yes (Other)
  Sender: AMGEN
  Company Number: TH-AMGEN-THASP2025120650

PATIENT

DRUGS (1)
  1. BEVACIZUMAB [Suspect]
     Active Substance: BEVACIZUMAB
     Indication: Diabetic retinal oedema
     Dosage: UNK, QMO

REACTIONS (6)
  - Cataract [Unknown]
  - Glaucoma [Unknown]
  - Ocular hypertension [Unknown]
  - Drug ineffective for unapproved indication [Unknown]
  - Diabetic retinopathy [Unknown]
  - Off label use [Unknown]
